FAERS Safety Report 5252912-7 (Version None)
Quarter: 2007Q1

REPORT INFORMATION
  Report Type: 
  Country: None (occurrence: None)
  Receive Date: 20070227
  Receipt Date: 20070208
  Transmission Date: 20070707
  Serious: Yes (Life-Threatening, Hospitalization)
  Sender: FDA-Public Use
  Company Number: 236852

PATIENT
  Age: 68 Year
  Sex: Female

DRUGS (19)
  1. AVASTIN [Suspect]
     Indication: COLON CANCER
     Dosage: 440 MG, Q2W, INTRAVENOUS
     Route: 042
     Dates: start: 20051212
  2. OXALIPLATIN [Suspect]
     Indication: COLON CANCER
     Dosage: 170 MG, Q2W, INTRAVENOUS
     Route: 042
     Dates: start: 20051212
  3. LEUCOVORIN CALCIUM [Suspect]
     Indication: COLON CANCER
     Dosage: 400 MG, INTRAVENOUS
     Route: 042
     Dates: start: 20051212
  4. GOPTEN(TRANDOLAPRIL) [Suspect]
     Indication: HYPERTENSION
  5. CALTRATE (CALCIUM CARBONATE) [Concomitant]
  6. DILTIAZEM HCL [Concomitant]
  7. INDAPAMIDE [Concomitant]
  8. LANSOPRAZOLE [Concomitant]
  9. NAPROXEN [Concomitant]
  10. ESTRADERM [Concomitant]
  11. SLOW-K [Concomitant]
  12. PRAVACHOL [Concomitant]
  13. OXYCODONE HCL [Concomitant]
  14. TRANDOLAPRIL [Concomitant]
  15. PANADEINE FORTE (ACETAMINOPHEN, CODEINE PHOSPHATE) [Concomitant]
  16. ACETAMINOPHEN [Concomitant]
  17. FYBOGEL (CITRIC ACID, PSYLLIUM HUSK, SODIUM BICARBONATE) [Concomitant]
  18. BISACODYL (BISACODYL) [Concomitant]
  19. ENDEP [Concomitant]

REACTIONS (1)
  - ANGIOEDEMA [None]
